FAERS Safety Report 13470201 (Version 1)
Quarter: 2017Q2

REPORT INFORMATION
  Report Type: Spontaneous
  Country: US (occurrence: US)
  Receive Date: 20170421
  Receipt Date: 20170421
  Transmission Date: 20170830
  Serious: No
  Sender: FDA-Public Use
  Company Number: None

PATIENT
  Age: 41 Year
  Sex: Female

DRUGS (1)
  1. TALTZ [Suspect]
     Active Substance: IXEKIZUMAB
     Indication: PSORIASIS
     Dosage: 80MG Q 4 WEEKS SQ
     Route: 058
     Dates: start: 20170406, end: 20170420

REACTIONS (1)
  - Injection site pain [None]

NARRATIVE: CASE EVENT DATE: 20170420
